FAERS Safety Report 10335112 (Version 1)
Quarter: 2014Q3

REPORT INFORMATION
  Report Type: Spontaneous
  Country: US (occurrence: None)
  Receive Date: 20140722
  Receipt Date: 20140722
  Transmission Date: 20150326
  Serious: Yes (Disabling)
  Sender: FDA-Public Use
  Company Number: None

PATIENT
  Age: 60 Year
  Sex: Female
  Weight: 58.06 kg

DRUGS (1)
  1. PROLIA [Suspect]
     Active Substance: DENOSUMAB
     Indication: OSTEOPOROSIS

REACTIONS (6)
  - Sleep apnoea syndrome [None]
  - Blood parathyroid hormone increased [None]
  - Contusion [None]
  - Migraine [None]
  - Dermatitis [None]
  - Bone pain [None]

NARRATIVE: CASE EVENT DATE: 20120913
